FAERS Safety Report 10147013 (Version 2)
Quarter: 2014Q2

REPORT INFORMATION
  Report Type: Spontaneous
  Country: SK (occurrence: SK)
  Receive Date: 20140501
  Receipt Date: 20140505
  Transmission Date: 20141212
  Serious: Yes (Other)
  Sender: FDA-Public Use
  Company Number: SK-GLAXOSMITHKLINE-B0989862A

PATIENT
  Age: 75 Year
  Sex: 0

DRUGS (1)
  1. VOTRIENT [Suspect]
     Indication: RENAL CELL CARCINOMA
     Dosage: 600MG PER DAY
     Route: 065
     Dates: start: 20130410

REACTIONS (3)
  - Pulmonary embolism [Unknown]
  - Blood pressure increased [Unknown]
  - Fatigue [Unknown]
